FAERS Safety Report 19690418 (Version 1)
Quarter: 2021Q3

REPORT INFORMATION
  Report Type: Spontaneous
  Country: JP (occurrence: JP)
  Receive Date: 20210812
  Receipt Date: 20210812
  Transmission Date: 20211014
  Serious: Yes (Other)
  Sender: FDA-Public Use
  Company Number: JP-ELI_LILLY_AND_COMPANY-JP202108001372

PATIENT
  Age: 68 Year
  Sex: Female

DRUGS (3)
  1. VERZENIO [Suspect]
     Active Substance: ABEMACICLIB
     Dosage: 100 MG, BID
     Route: 048
  2. VERZENIO [Suspect]
     Active Substance: ABEMACICLIB
     Indication: BREAST CANCER METASTATIC
     Dosage: 150 MG, BID
     Route: 048
  3. FULVESTRANT. [Concomitant]
     Active Substance: FULVESTRANT
     Indication: BREAST CANCER METASTATIC

REACTIONS (5)
  - Cardiac failure chronic [Recovered/Resolved]
  - Decreased appetite [Unknown]
  - Cardiomyopathy [Recovered/Resolved]
  - Diarrhoea [Unknown]
  - Myelosuppression [Unknown]
